FAERS Safety Report 7916464-2 (Version None)
Quarter: 2011Q4

REPORT INFORMATION
  Report Type: 
  Country: None (occurrence: None)
  Receive Date: 20111114
  Receipt Date: 20111107
  Transmission Date: 20120403
  Serious: Yes (Other)
  Sender: FDA-Public Use
  Company Number: AUR-APL-2011-05768

PATIENT
  Age: 10 Year
  Sex: Male
  Weight: 45.35 kg

DRUGS (7)
  1. CONCERTA [Concomitant]
  2. OBETROL [Suspect]
     Indication: ATTENTION DEFICIT/HYPERACTIVITY DISORDER
     Dosage: (10 MG)
  3. ZOLOFT [Concomitant]
  4. ABILIFY [Suspect]
     Indication: AFFECTIVE DISORDER
  5. RISPERIDONE [Suspect]
     Indication: AFFECTIVE DISORDER
  6. INTUNIV [Concomitant]
  7. TRAZODONE HCL [Concomitant]

REACTIONS (4)
  - AGGRESSION [None]
  - WEIGHT INCREASED [None]
  - DRUG INEFFECTIVE [None]
  - HALLUCINATION [None]
